FAERS Safety Report 10670873 (Version 1)
Quarter: 2014Q4

REPORT INFORMATION
  Report Type: Spontaneous
  Country: US (occurrence: US)
  Receive Date: 20141223
  Receipt Date: 20141223
  Transmission Date: 20150529
  Serious: No
  Sender: FDA-Public Use
  Company Number: US-PFIZER INC-2014354429

PATIENT
  Age: 62 Year
  Sex: Male

DRUGS (3)
  1. ADIPEX-P [Suspect]
     Active Substance: PHENTERMINE HYDROCHLORIDE
     Indication: WEIGHT CONTROL
     Dosage: UNK
     Dates: start: 2010
  2. AMBIEN [Concomitant]
     Active Substance: ZOLPIDEM TARTRATE
     Indication: SLEEP DISORDER
     Dosage: UNK
  3. CHANTIX [Suspect]
     Active Substance: VARENICLINE TARTRATE
     Indication: SMOKING CESSATION THERAPY
     Dosage: UNK
     Dates: start: 2010

REACTIONS (1)
  - Middle insomnia [Not Recovered/Not Resolved]
